FAERS Safety Report 5133515-1 (Version None)
Quarter: 2006Q4

REPORT INFORMATION
  Report Type: 
  Country: None (occurrence: None)
  Receive Date: 20061024
  Receipt Date: 20061013
  Transmission Date: 20070319
  Serious: Yes (Hospitalization)
  Sender: FDA-Public Use
  Company Number: JP-JNJFOC-20060201215

PATIENT
  Sex: Female
  Weight: 43 kg

DRUGS (14)
  1. REMICADE [Suspect]
     Route: 042
  2. REMICADE [Suspect]
     Route: 042
  3. REMICADE [Suspect]
     Route: 042
  4. REMICADE [Suspect]
     Indication: CROHN'S DISEASE
     Route: 042
  5. PREDNISOLONE [Suspect]
     Indication: BEHCET'S SYNDROME
     Route: 048
  6. PREDNISOLONE [Suspect]
     Indication: CROHN'S DISEASE
     Route: 048
  7. CYCLOSPORINE [Suspect]
     Indication: DRUG USE FOR UNKNOWN INDICATION
     Route: 048
  8. PREDONINE [Concomitant]
     Indication: BEHCET'S SYNDROME
     Route: 042
  9. PREDONINE [Concomitant]
     Indication: CROHN'S DISEASE
     Dosage: TAPERED
     Route: 042
  10. SALAZOPYRIN [Concomitant]
     Indication: BEHCET'S SYNDROME
     Route: 048
  11. SALAZOPYRIN [Concomitant]
     Indication: CROHN'S DISEASE
     Route: 048
  12. LECTISOL [Concomitant]
     Indication: BEHCET'S SYNDROME
     Route: 048
  13. AZELASTINE HCL [Concomitant]
     Indication: BEHCET'S SYNDROME
     Route: 048
  14. COLCHICINE [Concomitant]
     Indication: BEHCET'S SYNDROME
     Route: 048

REACTIONS (1)
  - BREAST CANCER [None]
